FAERS Safety Report 5652843-4 (Version None)
Quarter: 2008Q1

REPORT INFORMATION
  Report Type: 
  Country: None (occurrence: None)
  Receive Date: 20080131
  Receipt Date: 20071113
  Transmission Date: 20080703
  Serious: No
  Sender: FDA-Public Use
  Company Number: US200710003582

PATIENT
  Age: 52 Year
  Sex: Female

DRUGS (3)
  1. BYETTA [Suspect]
     Indication: TYPE 2 DIABETES MELLITUS
     Dosage: 5 UG, 2/D, SUBCUTANEOUS
     Route: 058
     Dates: start: 20070801
  2. GLYBURIDE [Concomitant]
  3. METFORMIN HCL [Concomitant]

REACTIONS (10)
  - BLOOD GLUCOSE INCREASED [None]
  - DIZZINESS [None]
  - EYE PAIN [None]
  - FATIGUE [None]
  - FEELING JITTERY [None]
  - HEAD DISCOMFORT [None]
  - HYPOGLYCAEMIA [None]
  - POLYURIA [None]
  - STOMACH DISCOMFORT [None]
  - VISION BLURRED [None]
